FAERS Safety Report 14082706 (Version 1)
Quarter: 2017Q4

REPORT INFORMATION
  Report Type: Spontaneous
  Country: US (occurrence: US)
  Receive Date: 20171012
  Receipt Date: 20171012
  Transmission Date: 20180321
  Serious: No
  Sender: FDA-Public Use
  Company Number: US-MYLANLABS-2017M1054250

PATIENT
  Age: 30 Year
  Sex: Female

DRUGS (1)
  1. FENTANYL TRANSDERMAL SYSTEM [Suspect]
     Active Substance: FENTANYL
     Indication: PAIN
     Dosage: 25 ?G, QH, CHANGED EVERY 72 HOURS
     Route: 062
     Dates: start: 201708

REACTIONS (2)
  - Pain in extremity [Unknown]
  - Palpitations [Unknown]

NARRATIVE: CASE EVENT DATE: 201708
